FAERS Safety Report 24894125 (Version 1)
Quarter: 2025Q1

REPORT INFORMATION
  Report Type: Report from Study
  Country: TR (occurrence: TR)
  Receive Date: 20250128
  Receipt Date: 20250128
  Transmission Date: 20250408
  Serious: Yes (Hospitalization, Other)
  Sender: RANBAXY
  Company Number: TR-SUN PHARMACEUTICAL INDUSTRIES LTD-2025R1-490553

PATIENT
  Age: 79 Year
  Sex: Female

DRUGS (4)
  1. OLANZAPINE [Suspect]
     Active Substance: OLANZAPINE
     Indication: Corticobasal degeneration
     Route: 065
  2. OLANZAPINE [Suspect]
     Active Substance: OLANZAPINE
     Indication: Dementia Alzheimer^s type
  3. HALOPERIDOL [Suspect]
     Active Substance: HALOPERIDOL
     Indication: Corticobasal degeneration
     Route: 065
  4. HALOPERIDOL [Suspect]
     Active Substance: HALOPERIDOL
     Indication: Dementia Alzheimer^s type

REACTIONS (1)
  - Neuroleptic malignant syndrome [Unknown]
